FAERS Safety Report 5690873-7 (Version None)
Quarter: 2008Q2

REPORT INFORMATION
  Report Type: 
  Country: None (occurrence: None)
  Receive Date: 20080401
  Receipt Date: 20080324
  Transmission Date: 20081010
  Serious: Yes (Other)
  Sender: FDA-Public Use
  Company Number: US-ELI_LILLY_AND_COMPANY-US200803005533

PATIENT
  Sex: Male

DRUGS (3)
  1. CYMBALTA [Suspect]
     Dosage: UNK, UNK
     Dates: start: 20040101, end: 20070101
  2. CYMBALTA [Suspect]
     Dates: start: 20070101
  3. REBIF [Concomitant]
     Indication: MULTIPLE SCLEROSIS
     Dosage: 44 MEQ, 3/W
     Route: 058
     Dates: start: 20070117, end: 20071025

REACTIONS (1)
  - LIVER FUNCTION TEST ABNORMAL [None]
